FAERS Safety Report 18765090 (Version 1)
Quarter: 2021Q1

REPORT INFORMATION
  Report Type: Report from Study
  Country: CA (occurrence: CA)
  Receive Date: 20210120
  Receipt Date: 20210120
  Transmission Date: 20210419
  Serious: Yes (Other)
  Sender: FDA-Public Use
  Company Number: CA-PFIZER INC-2021028185

PATIENT
  Sex: Male

DRUGS (12)
  1. TYLENOL [Concomitant]
     Active Substance: ACETAMINOPHEN
  2. BORAGO OFFICINALIS/FISH OIL [Concomitant]
  3. WARFARIN [Concomitant]
     Active Substance: WARFARIN
  4. RITUXIMAB. [Suspect]
     Active Substance: RITUXIMAB
     Indication: PEMPHIGUS
     Dosage: 1000 MG, 1 EVERY 15 DAYS
     Route: 042
  5. ATORVASTATIN [Concomitant]
     Active Substance: ATORVASTATIN
  6. BENADRYL [Concomitant]
     Active Substance: DIPHENHYDRAMINE HYDROCHLORIDE
  7. RIVAROXABAN [Concomitant]
     Active Substance: RIVAROXABAN
  8. BISOPROLOL [Concomitant]
     Active Substance: BISOPROLOL
  9. PANTOPRAZOLE [Concomitant]
     Active Substance: PANTOPRAZOLE
  10. GLUCOSAMINE [Concomitant]
     Active Substance: GLUCOSAMINE
  11. RITUXIMAB. [Suspect]
     Active Substance: RITUXIMAB
     Indication: PEMPHIGUS
     Dosage: UNK
     Route: 042
  12. METHYLPREDNISOLONE. [Concomitant]
     Active Substance: METHYLPREDNISOLONE

REACTIONS (2)
  - Atrial fibrillation [Unknown]
  - Off label use [Unknown]
